FAERS Safety Report 21369589 (Version 4)
Quarter: 2023Q4

REPORT INFORMATION
  Report Type: Spontaneous
  Country: US (occurrence: US)
  Receive Date: 20220923
  Receipt Date: 20231106
  Transmission Date: 20240110
  Serious: Yes (Hospitalization, Other)
  Sender: FDA-Public Use
  Company Number: US-PFIZER INC-202201179604

PATIENT
  Age: 82 Year
  Sex: Female
  Weight: 66.68 kg

DRUGS (4)
  1. IBRANCE [Suspect]
     Active Substance: PALBOCICLIB
     Indication: Breast cancer metastatic
     Dosage: 125 MG, CYCLIC (ONCE A DAY FOR 21 DAYS-OFF 7 DAYS)
     Dates: start: 20220204
  2. IBRANCE [Suspect]
     Active Substance: PALBOCICLIB
     Indication: Hepatic cancer
     Dosage: ONCE A DAY FOR 21 DAYS THEN 7 DAYS OFF/ TAKE 1 TAB DAILY FOR 3 WEEKS FOLLOWED BY 1 WEEK OFF
     Route: 048
     Dates: start: 20220221, end: 20220907
  3. IBRANCE [Suspect]
     Active Substance: PALBOCICLIB
     Dosage: 100 MG, CYCLIC (ONCE A DAY FOR 21 DAYS-OFF 7 DAYS)
     Dates: end: 20221102
  4. ARIMIDEX [Concomitant]
     Active Substance: ANASTROZOLE
     Dosage: UNK
     Dates: start: 20220221

REACTIONS (8)
  - Cerebrovascular accident [Recovered/Resolved]
  - Syncope [Recovered/Resolved]
  - Deep vein thrombosis [Unknown]
  - Feeding disorder [Recovered/Resolved]
  - Nausea [Recovered/Resolved]
  - Illness [Recovered/Resolved]
  - Gastroenteritis viral [Recovered/Resolved]
  - Rash [Recovered/Resolved]

NARRATIVE: CASE EVENT DATE: 20220501
